FAERS Safety Report 9789845 (Version 1)
Quarter: 2013Q4

REPORT INFORMATION
  Report Type: Spontaneous
  Country: US (occurrence: None)
  Receive Date: 20131227
  Receipt Date: 20131227
  Transmission Date: 20140711
  Serious: Yes (Other)
  Sender: FDA-Public Use
  Company Number: 2013AP010744

PATIENT
  Age: 58 Year
  Sex: Female

DRUGS (8)
  1. PREDNISOLONE SYRUP [Suspect]
     Indication: B-CELL LYMPHOMA
  2. CYCLOPHOSPHAMIDE [Suspect]
     Indication: B-CELL LYMPHOMA
  3. DOXORUBICIN [Suspect]
     Indication: B-CELL LYMPHOMA
  4. ONCOVIN [Suspect]
     Indication: B-CELL LYMPHOMA
  5. FLUDARABINE [Suspect]
     Indication: B-CELL LYMPHOMA
  6. NOVANTRONE [Suspect]
     Indication: B-CELL LYMPHOMA
  7. DEXAMETHASONE [Suspect]
     Indication: B-CELL LYMPHOMA
  8. RITUXIMAB [Suspect]
     Indication: B-CELL LYMPHOMA

REACTIONS (4)
  - Myelodysplastic syndrome [None]
  - Chromosomal deletion [None]
  - Second primary malignancy [None]
  - Refractory anaemia with ringed sideroblasts [None]
